FAERS Safety Report 7720751-0 (Version None)
Quarter: 2011Q3

REPORT INFORMATION
  Report Type: 
  Country: None (occurrence: None)
  Receive Date: 20110831
  Receipt Date: 20110825
  Transmission Date: 20111222
  Serious: Yes (Death, Life-Threatening)
  Sender: FDA-Public Use
  Company Number: FR-ASTELLAS-2011EU003234

PATIENT
  Sex: Male

DRUGS (1)
  1. MYCAMINE [Suspect]
     Indication: CANDIDIASIS
     Dosage: 9.5 MG, UNKNOWN/D
     Route: 065
     Dates: start: 20110512

REACTIONS (2)
  - PHLEBITIS [None]
  - NERVOUS SYSTEM DISORDER [None]
